FAERS Safety Report 14506589 (Version 1)
Quarter: 2018Q1

REPORT INFORMATION
  Report Type: Spontaneous
  Country: US (occurrence: US)
  Receive Date: 20180208
  Receipt Date: 20180208
  Transmission Date: 20180509
  Serious: No
  Sender: FDA-Public Use
  Company Number: US-TARO-2017TAR00824

PATIENT
  Sex: Male

DRUGS (2)
  1. NYSTATIN AND TRIAMCINOLONE ACETONIDE [Suspect]
     Active Substance: NYSTATIN\TRIAMCINOLONE ACETONIDE
     Indication: PRURITUS
     Dosage: UNK UNK, 2X/DAY
  2. NYSTATIN AND TRIAMCINOLONE ACETONIDE [Suspect]
     Active Substance: NYSTATIN\TRIAMCINOLONE ACETONIDE
     Indication: ERYTHEMA

REACTIONS (3)
  - Erythema [Unknown]
  - Drug ineffective [Unknown]
  - Pruritus [Unknown]
